FAERS Safety Report 15706023 (Version 1)
Quarter: 2018Q4

REPORT INFORMATION
  Report Type: Report from Study
  Country: US (occurrence: US)
  Receive Date: 20181210
  Receipt Date: 20181210
  Transmission Date: 20190205
  Serious: Yes (Hospitalization, Other)
  Sender: FDA-Public Use
  Company Number: US-BAYER-2018-224850

PATIENT
  Age: 53 Year
  Sex: Female
  Weight: 69.84 kg

DRUGS (3)
  1. ADEMPAS [Suspect]
     Active Substance: RIOCIGUAT
     Indication: PULMONARY ARTERIAL HYPERTENSION
     Dosage: 2.0 MG, TID
     Route: 048
     Dates: start: 2018
  2. ADEMPAS [Suspect]
     Active Substance: RIOCIGUAT
     Indication: PULMONARY ARTERIAL HYPERTENSION
     Dosage: UNK
     Route: 048
     Dates: start: 20181015
  3. OPSUMIT [Concomitant]
     Active Substance: MACITENTAN

REACTIONS (6)
  - Haemorrhagic anaemia [Unknown]
  - Feeling of body temperature change [Unknown]
  - Joint swelling [Unknown]
  - Cough [Unknown]
  - Haemorrhage [None]
  - Influenza like illness [Unknown]

NARRATIVE: CASE EVENT DATE: 2018
